FAERS Safety Report 18716594 (Version 1)
Quarter: 2021Q1

REPORT INFORMATION
  Report Type: Spontaneous
  Country: US (occurrence: US)
  Receive Date: 20210107
  Receipt Date: 20210107
  Transmission Date: 20210419
  Serious: Yes (Hospitalization)
  Sender: FDA-Public Use
  Company Number: None

PATIENT
  Age: 71 Year
  Sex: Male

DRUGS (1)
  1. VICTOZA [Suspect]
     Active Substance: LIRAGLUTIDE
     Indication: DIABETES MELLITUS
     Route: 058
     Dates: start: 20190527, end: 20190711

REACTIONS (3)
  - Abdominal pain [None]
  - Cholecystitis acute [None]
  - Hepatic enzyme increased [None]

NARRATIVE: CASE EVENT DATE: 20190711
